FAERS Safety Report 15839676 (Version 5)
Quarter: 2022Q4

REPORT INFORMATION
  Report Type: Spontaneous
  Country: US (occurrence: US)
  Receive Date: 20190117
  Receipt Date: 20221007
  Transmission Date: 20230113
  Serious: Yes (Other)
  Sender: FDA-Public Use
  Company Number: US-PFIZER INC-2019022339

PATIENT
  Age: 78 Year
  Sex: Female

DRUGS (3)
  1. ZITHROMAX [Suspect]
     Active Substance: AZITHROMYCIN DIHYDRATE
     Indication: Pneumonia
     Dosage: 1500 MG, UNK (6 TABS X 250MG)
  2. ZITHROMAX [Suspect]
     Active Substance: AZITHROMYCIN DIHYDRATE
     Dosage: 250 MG (ON MONDAYS, WEDNESDAYS, AND THURSDAYS)
     Route: 048
  3. ZITHROMAX [Suspect]
     Active Substance: AZITHROMYCIN DIHYDRATE
     Dosage: 250 MG

REACTIONS (7)
  - Eye disorder [Unknown]
  - Off label use [Unknown]
  - Drug ineffective [Unknown]
  - COVID-19 [Unknown]
  - Lung disorder [Unknown]
  - Urticaria [Unknown]
  - Illness [Unknown]
